FAERS Safety Report 6613274-3 (Version None)
Quarter: 2010Q1

REPORT INFORMATION
  Report Type: 
  Country: None (occurrence: None)
  Receive Date: 20100225
  Receipt Date: 20100212
  Transmission Date: 20100710
  Serious: Yes (Death, Other)
  Sender: FDA-Public Use
  Company Number: JHP201000060

PATIENT
  Age: 58 Year
  Sex: Male

DRUGS (2)
  1. EPINEPHRINE [Suspect]
     Indication: CARDIAC ARREST
     Dosage: IV INFUSION, INTRAVENOUS
     Route: 042
  2. NORADRENALINE (NOREPINEHRINE) [Concomitant]

REACTIONS (2)
  - ARTERIOSPASM CORONARY [None]
  - MULTI-ORGAN FAILURE [None]
